FAERS Safety Report 8422762-9 (Version None)
Quarter: 2012Q2

REPORT INFORMATION
  Report Type: 
  Country: None (occurrence: None)
  Receive Date: 20120608
  Receipt Date: 20120605
  Transmission Date: 20120825
  Serious: Yes (Hospitalization, Disabling, Other)
  Sender: FDA-Public Use
  Company Number: US-MERCK-1203USA03335

PATIENT
  Age: 69 Year
  Sex: Female
  Weight: 56 kg

DRUGS (10)
  1. AMLODIPINE [Concomitant]
     Indication: BLOOD CHOLESTEROL
     Dosage: TO PRESENT
     Route: 048
     Dates: start: 20090101
  2. PRAVASTATIN SODIUM [Concomitant]
     Indication: BLOOD CHOLESTEROL
     Dosage: PRESENT
     Route: 065
     Dates: start: 20070101
  3. ALENDRONATE SODIUM [Suspect]
     Indication: BONE DISORDER
     Route: 048
     Dates: start: 20090101, end: 20100201
  4. LEVOTHYROXINE SODIUM [Concomitant]
     Indication: THYROID DISORDER
     Dosage: TO PRESENT
     Route: 065
     Dates: start: 19800101
  5. ZOCOR [Concomitant]
     Indication: BLOOD CHOLESTEROL
     Route: 065
     Dates: start: 19800101, end: 20070101
  6. FOSAMAX [Suspect]
     Indication: BONE DISORDER
     Route: 048
     Dates: start: 20030501, end: 20100201
  7. LABETALOL HYDROCHLORIDE [Concomitant]
     Indication: BLOOD PRESSURE
     Dosage: PRESENT
     Route: 065
     Dates: start: 19970101
  8. LISINOPRIL [Concomitant]
     Indication: BLOOD CHOLESTEROL
     Dosage: TO PRESENT
     Route: 065
     Dates: start: 19960101
  9. NORVASC [Concomitant]
     Indication: BLOOD PRESSURE
     Dosage: PRESENT
     Route: 065
     Dates: start: 19700101
  10. MAXZIDE [Concomitant]
     Indication: BLOOD PRESSURE
     Dosage: STOP ABOUT 6MTHS AGO
     Route: 065
     Dates: start: 19700101

REACTIONS (35)
  - RENAL FAILURE CHRONIC [None]
  - SPONDYLOLISTHESIS [None]
  - IMPAIRED HEALING [None]
  - ULCER [None]
  - SYNOVIAL CYST [None]
  - SPINAL COLUMN STENOSIS [None]
  - HYPERLIPIDAEMIA [None]
  - INJURY [None]
  - CARDIOVASCULAR DISORDER [None]
  - ORTHOSTATIC HYPOTENSION [None]
  - TRIGGER FINGER [None]
  - TENDONITIS [None]
  - BLOOD DISORDER [None]
  - DEPRESSION [None]
  - GASTROOESOPHAGEAL REFLUX DISEASE [None]
  - COUGH [None]
  - INTERVERTEBRAL DISC DISORDER [None]
  - OSTEOARTHRITIS [None]
  - FACET JOINT SYNDROME [None]
  - SLEEP APNOEA SYNDROME [None]
  - MYOFASCIAL PAIN SYNDROME [None]
  - FEMUR FRACTURE [None]
  - MUSCULOSKELETAL PAIN [None]
  - BACK PAIN [None]
  - ANAEMIA OF CHRONIC DISEASE [None]
  - INFECTION [None]
  - SCIATICA [None]
  - INTERVERTEBRAL DISC PROTRUSION [None]
  - MUSCLE STRAIN [None]
  - KELOID SCAR [None]
  - JOINT RANGE OF MOTION DECREASED [None]
  - OSTEOPOROSIS [None]
  - FALL [None]
  - INTERVERTEBRAL DISC DEGENERATION [None]
  - AORTIC ARTERIOSCLEROSIS [None]
